FAERS Safety Report 13108904 (Version 1)
Quarter: 2017Q1

REPORT INFORMATION
  Report Type: Spontaneous
  Country: US (occurrence: US)
  Receive Date: 20170112
  Receipt Date: 20170112
  Transmission Date: 20170428
  Serious: No
  Sender: FDA-Public Use
  Company Number: US-GLAXOSMITHKLINE-US2017002623

PATIENT
  Sex: Female

DRUGS (1)
  1. ALLI [Suspect]
     Active Substance: ORLISTAT
     Indication: PRODUCT USED FOR UNKNOWN INDICATION
     Dosage: UNK

REACTIONS (6)
  - Anal incontinence [Unknown]
  - Treatment noncompliance [Unknown]
  - Faeces discoloured [Unknown]
  - Irritable bowel syndrome [Unknown]
  - Steatorrhoea [Unknown]
  - Haemorrhoids [Unknown]
